FAERS Safety Report 18931541 (Version 1)
Quarter: 2021Q1

REPORT INFORMATION
  Report Type: Spontaneous
  Country: US (occurrence: US)
  Receive Date: 20210223
  Receipt Date: 20210223
  Transmission Date: 20210420
  Serious: No
  Sender: FDA-Public Use
  Company Number: US-IGSA-SR10009961

PATIENT
  Age: 54 Year
  Sex: Female
  Weight: 83 kg

DRUGS (11)
  1. CETIRIZINE                         /00884302/ [Concomitant]
     Active Substance: CETIRIZINE HYDROCHLORIDE
  2. MONTELUKAST                        /01362602/ [Concomitant]
     Active Substance: MONTELUKAST SODIUM
  3. PROAIR HFA [Concomitant]
     Active Substance: ALBUTEROL SULFATE
  4. IPRATROPIUM/ALBUTEROL [Concomitant]
     Active Substance: ALBUTEROL\IPRATROPIUM
  5. PROLASTIN?C LIQUID [Suspect]
     Active Substance: .ALPHA.1-PROTEINASE INHIBITOR HUMAN
     Indication: ALPHA-1 ANTITRYPSIN DEFICIENCY
     Dosage: 4980 MG, Q.WK.
     Route: 042
     Dates: start: 20200220
  6. CYMBALTA [Concomitant]
     Active Substance: DULOXETINE HYDROCHLORIDE
  7. NEURONTIN [Concomitant]
     Active Substance: GABAPENTIN
  8. SAVELLA [Concomitant]
     Active Substance: MILNACIPRAN HYDROCHLORIDE
  9. SPIRIVA RESPIMAT [Concomitant]
     Active Substance: TIOTROPIUM BROMIDE
  10. PROLASTIN?C LIQUID [Suspect]
     Active Substance: .ALPHA.1-PROTEINASE INHIBITOR HUMAN
     Dosage: UNK MG, Q.WK.
     Route: 042
     Dates: start: 20180626
  11. PREDNISONE                         /00044702/ [Concomitant]
     Active Substance: PREDNISONE

REACTIONS (4)
  - Vomiting [Recovered/Resolved]
  - Migraine [Recovering/Resolving]
  - Nausea [Recovered/Resolved]
  - Feeling abnormal [Not Recovered/Not Resolved]

NARRATIVE: CASE EVENT DATE: 20200220
